FAERS Safety Report 6899570-3 (Version None)
Quarter: 2010Q3

REPORT INFORMATION
  Report Type: 
  Country: None (occurrence: None)
  Receive Date: 20100729
  Receipt Date: 20100726
  Transmission Date: 20110219
  Serious: Yes (Other)
  Sender: FDA-Public Use
  Company Number: 20109060

PATIENT
  Sex: Male

DRUGS (1)
  1. LIORESAL [Suspect]
     Indication: MUSCLE SPASTICITY
     Dosage: 73 MCG, DAILY, INTRATHECAL
     Route: 037

REACTIONS (9)
  - DEVICE BREAKAGE [None]
  - DEVICE DISLOCATION [None]
  - HEADACHE [None]
  - INTRACRANIAL HYPOTENSION [None]
  - MEDICAL DEVICE COMPLICATION [None]
  - MEDICAL DEVICE PAIN [None]
  - POST PROCEDURAL COMPLICATION [None]
  - SUTURE RUPTURE [None]
  - THERAPEUTIC RESPONSE DECREASED [None]
